FAERS Safety Report 9563317 (Version 1)
Quarter: 2013Q3

REPORT INFORMATION
  Report Type: Spontaneous
  Country: US (occurrence: US)
  Receive Date: 20130927
  Receipt Date: 20130927
  Transmission Date: 20140515
  Serious: Yes (Life-Threatening, Hospitalization, Disabling, Other)
  Sender: FDA-Public Use
  Company Number: US-009507513-1309USA011095

PATIENT
  Age: 68 Year
  Sex: Female
  Weight: 100 kg

DRUGS (2)
  1. REMERON [Suspect]
     Dosage: 150 MG, QD
     Route: 048
  2. REMERON [Suspect]
     Dosage: 30 MG, QD
     Route: 048

REACTIONS (6)
  - Depression [Unknown]
  - Weight increased [Unknown]
  - Suicidal ideation [Unknown]
  - Anxiety [Unknown]
  - Urinary tract infection [Unknown]
  - Overdose [Unknown]
